FAERS Safety Report 12828364 (Version 6)
Quarter: 2016Q4

REPORT INFORMATION
  Report Type: Spontaneous
  Country: ES (occurrence: ES)
  Receive Date: 20161007
  Receipt Date: 20161212
  Transmission Date: 20170207
  Serious: Yes (Other)
  Sender: FDA-Public Use
  Company Number: ES-009507513-1610ESP002280

PATIENT
  Age: 52 Year
  Sex: Female
  Weight: 40 kg

DRUGS (5)
  1. RIFINAH [Concomitant]
     Active Substance: ISONIAZID\RIFAMPIN
     Indication: TUBERCULOSIS
     Dosage: 2 TABLETS/DAY (600 MG RIFAMPICIN,300 MG ISONIAZID)
     Route: 048
     Dates: start: 201603
  2. ETHAMBUTOL [Concomitant]
     Active Substance: ETHAMBUTOL HYDROCHLORIDE
     Indication: TUBERCULOSIS
     Dosage: 2 TABLETS/DAY
     Route: 048
     Dates: start: 201603
  3. ISENTRESS [Suspect]
     Active Substance: RALTEGRAVIR POTASSIUM
     Indication: HIV INFECTION
     Dosage: 400 MG, TWO TIMES A DAY
     Route: 048
     Dates: start: 20160308, end: 20161111
  4. ABACAVIR SULFATE, LAMIVUDINE AND ZIDOVUDINE [Suspect]
     Active Substance: ABACAVIR SULFATE\LAMIVUDINE\ZIDOVUDINE
     Indication: ANTIRETROVIRAL THERAPY
     Dosage: UNK
  5. RIFAMPIN. [Suspect]
     Active Substance: RIFAMPIN

REACTIONS (5)
  - Blood HIV RNA increased [Unknown]
  - Underdose [Unknown]
  - Virologic failure [Recovering/Resolving]
  - Drug resistance [Unknown]
  - Treatment noncompliance [None]

NARRATIVE: CASE EVENT DATE: 20160928
